FAERS Safety Report 6260922-6 (Version None)
Quarter: 2009Q3

REPORT INFORMATION
  Report Type: 
  Country: None (occurrence: None)
  Receive Date: 20090709
  Receipt Date: 20070515
  Transmission Date: 20100115
  Serious: Yes (Hospitalization, Other)
  Sender: FDA-Public Use
  Company Number: US-ASTRAZENECA-2006UW23947

PATIENT
  Age: 45 Year
  Sex: Female
  Weight: 103 kg

DRUGS (20)
  1. SEROQUEL [Suspect]
     Indication: SLEEP DISORDER
     Route: 048
     Dates: start: 20031101, end: 20040701
  2. SEROQUEL [Suspect]
     Dosage: 25 MG TO 100 MG
     Route: 048
     Dates: start: 20031104
  3. THORAZINE [Concomitant]
     Route: 048
     Dates: start: 19920101
  4. ZYPREXA [Concomitant]
     Route: 048
     Dates: start: 20030124
  5. ZOLOFT [Concomitant]
     Route: 048
     Dates: start: 20030124
  6. TYLENOL (CAPLET) [Concomitant]
     Indication: PAIN
     Dosage: 325 MG 2 TABLET AS REQUIRED
     Route: 048
     Dates: start: 20020305
  7. TRAZODONE HCL [Concomitant]
     Route: 048
     Dates: start: 20030812
  8. ULTRACET [Concomitant]
     Route: 048
     Dates: start: 20030812
  9. CLONAZEPAM [Concomitant]
     Route: 048
     Dates: start: 20030124
  10. PROPRANOLOL HYDROCHLORIDE [Concomitant]
     Route: 048
     Dates: start: 20030124
  11. ESKALITH [Concomitant]
     Dosage: 450 MG 1 TABLET MORNING 2 TABLET BED TIME
     Route: 048
     Dates: start: 20030124
  12. SINGULAIR [Concomitant]
     Route: 048
     Dates: start: 20030124
  13. VIOXX [Concomitant]
     Route: 048
     Dates: start: 20030124
  14. RANITIDINE [Concomitant]
     Route: 048
     Dates: start: 20030124
  15. LORATADINE [Concomitant]
     Route: 048
     Dates: start: 20040131
  16. STARLIX [Concomitant]
     Route: 048
     Dates: start: 20041108
  17. IBUPROFEN TABLETS [Concomitant]
     Route: 048
     Dates: start: 20041108
  18. METFORMIN HCL [Concomitant]
     Route: 048
     Dates: start: 20050103
  19. CELEBREX [Concomitant]
     Route: 048
     Dates: start: 20050103
  20. PHENERGAN [Concomitant]
     Route: 048
     Dates: start: 20050819

REACTIONS (4)
  - DIABETES MELLITUS [None]
  - DIABETIC COMA [None]
  - DIABETIC KETOACIDOSIS [None]
  - MENTAL DISORDER [None]
